FAERS Safety Report 8549590-8 (Version None)
Quarter: 2012Q3

REPORT INFORMATION
  Report Type: 
  Country: None (occurrence: None)
  Receive Date: 20120730
  Receipt Date: 20120726
  Transmission Date: 20120928
  Serious: Yes (Death)
  Sender: FDA-Public Use
  Company Number: CA-ABBOTT-12P-028-0951073-00

PATIENT
  Sex: Male
  Weight: 72 kg

DRUGS (1)
  1. HUMIRA [Suspect]
     Indication: PSORIASIS
     Dosage: 2010 ON, LAST VISIT WITH MD 07-FEB-2011
     Route: 058
     Dates: start: 20081001

REACTIONS (1)
  - DEATH [None]
